APPROVED DRUG PRODUCT: HYDROCORTISONE
Active Ingredient: HYDROCORTISONE
Strength: 2.5%
Dosage Form/Route: LOTION;TOPICAL
Application: A040351 | Product #001
Applicant: FOUGERA PHARMACEUTICALS INC
Approved: Jul 25, 2000 | RLD: No | RS: No | Type: DISCN